FAERS Safety Report 9075440 (Version 1)
Quarter: 2013Q1

REPORT INFORMATION
  Report Type: Report from Study
  Country: US (occurrence: US)
  Receive Date: 20130129
  Receipt Date: 20130129
  Transmission Date: 20140127
  Serious: No
  Sender: FDA-Public Use
  Company Number: US-ABBOTT-12P-163-0941548-00

PATIENT
  Age: 27 Year
  Sex: Male

DRUGS (1)
  1. HUMIRA 40 MG/0.8 ML PEN [Suspect]
     Indication: PSORIASIS
     Dosage: 80MG ON 31 MAY 2012
     Dates: start: 20120531

REACTIONS (1)
  - Incorrect storage of drug [Unknown]
